FAERS Safety Report 15023792 (Version 1)
Quarter: 2018Q2

REPORT INFORMATION
  Report Type: Spontaneous
  Country: US (occurrence: US)
  Receive Date: 20180618
  Receipt Date: 20180618
  Transmission Date: 20180711
  Serious: Yes (Other)
  Sender: FDA-Public Use
  Company Number: US-HYGENIC CORPORATION-2049579

PATIENT
  Age: 5 Year
  Sex: Male

DRUGS (6)
  1. BIOFREEZE [Suspect]
     Active Substance: MENTHOL
     Indication: ARTHRALGIA
     Route: 061
     Dates: start: 20180529
  2. BIOFREEZE [Suspect]
     Active Substance: MENTHOL
     Indication: MYALGIA
     Route: 061
     Dates: start: 20180529
  3. BIOFREEZE [Suspect]
     Active Substance: MENTHOL
     Indication: ARTHRITIS
     Route: 061
     Dates: start: 20180529
  4. BIOFREEZE [Suspect]
     Active Substance: MENTHOL
     Indication: MUSCLE STRAIN
     Route: 061
     Dates: start: 20180529
  5. BIOFREEZE [Suspect]
     Active Substance: MENTHOL
     Indication: PAIN
     Route: 061
     Dates: start: 20180529
  6. BIOFREEZE [Suspect]
     Active Substance: MENTHOL
     Indication: BACK PAIN
     Route: 061
     Dates: start: 20180529

REACTIONS (2)
  - Eye irritation [Recovered/Resolved]
  - Accidental exposure to product [None]

NARRATIVE: CASE EVENT DATE: 20180606
